FAERS Safety Report 17505201 (Version 2)
Quarter: 2020Q2

REPORT INFORMATION
  Report Type: Spontaneous
  Country: ES (occurrence: ES)
  Receive Date: 20200305
  Receipt Date: 20200609
  Transmission Date: 20200713
  Serious: Yes (Death, Life-Threatening)
  Sender: FDA-Public Use
  Company Number: ES-009507513-2003ESP001059

PATIENT
  Age: 81 Year
  Sex: Female

DRUGS (2)
  1. ZINPLAVA [Suspect]
     Active Substance: BEZLOTOXUMAB
     Indication: CLOSTRIDIUM DIFFICILE INFECTION
     Dosage: UNK, ONCE (1 TOTAL)
     Route: 042
     Dates: start: 20181126, end: 20181126
  2. VANCOMYCIN [Concomitant]
     Active Substance: VANCOMYCIN
     Indication: CLOSTRIDIUM DIFFICILE INFECTION
     Dosage: TAPERING

REACTIONS (1)
  - Death [Fatal]

NARRATIVE: CASE EVENT DATE: 20181212
